FAERS Safety Report 7433134-8 (Version None)
Quarter: 2011Q2

REPORT INFORMATION
  Report Type: 
  Country: None (occurrence: None)
  Receive Date: 20110415
  Receipt Date: 20110404
  Transmission Date: 20111010
  Serious: Yes (Hospitalization)
  Sender: FDA-Public Use
  Company Number: 022753

PATIENT
  Sex: Male

DRUGS (8)
  1. ANDROGEL [Concomitant]
  2. CIMZIA [Suspect]
     Indication: CROHN'S DISEASE
     Dosage: SEE IMAGE: SUBCUTANEOUS
     Route: 058
     Dates: start: 20101001, end: 20101202
  3. CIMZIA [Suspect]
     Indication: CROHN'S DISEASE
     Dosage: SEE IMAGE: SUBCUTANEOUS
     Route: 058
     Dates: start: 20101202
  4. CIMZIA [Suspect]
     Indication: CROHN'S DISEASE
     Dosage: SEE IMAGE: SUBCUTANEOUS
     Route: 058
     Dates: start: 20100907, end: 20101001
  5. M.V.I. [Concomitant]
  6. OSCAL D [Concomitant]
  7. VITAMIN D [Concomitant]
  8. FOLIC ACID [Concomitant]

REACTIONS (3)
  - PYREXIA [None]
  - MALAISE [None]
  - NASAL CONGESTION [None]
